FAERS Safety Report 7263439-5 (Version None)
Quarter: 2011Q1

REPORT INFORMATION
  Report Type: 
  Country: None (occurrence: None)
  Receive Date: 20110130
  Receipt Date: 20101106
  Transmission Date: 20110831
  Serious: No
  Sender: FDA-Public Use
  Company Number: US-ABBOTT-10P-163-0683880-00

PATIENT
  Age: 55 Year
  Sex: Female

DRUGS (4)
  1. SOMA [Concomitant]
     Indication: MUSCLE SPASMS
     Dosage: AT NIGHT
  2. STEROIDS [Concomitant]
     Indication: PRODUCT USED FOR UNKNOWN INDICATION
  3. HUMIRA [Suspect]
     Indication: RHEUMATOID ARTHRITIS
     Dates: start: 20100901
  4. ULTRAM [Concomitant]
     Indication: ARTHRALGIA
     Dosage: PRN

REACTIONS (1)
  - COLITIS ULCERATIVE [None]
